FAERS Safety Report 5082005-3 (Version None)
Quarter: 2006Q3

REPORT INFORMATION
  Report Type: 
  Country: None (occurrence: None)
  Receive Date: 20060811
  Receipt Date: 20060801
  Transmission Date: 20061208
  Serious: Yes (Hospitalization, Other)
  Sender: FDA-Public Use
  Company Number: 2006-08-0026

PATIENT
  Age: 14 Year
  Sex: Male

DRUGS (4)
  1. CELESTAMINE TAB [Suspect]
     Indication: PYREXIA
     Dosage: 1 TAB ORAL
     Route: 048
     Dates: start: 20060628
  2. METILON [Concomitant]
  3. CEFZON [Concomitant]
  4. BRUFEN [Concomitant]

REACTIONS (3)
  - DEPRESSED LEVEL OF CONSCIOUSNESS [None]
  - FALL [None]
  - FRACTURE [None]
